FAERS Safety Report 23803323 (Version 1)
Quarter: 2024Q2

REPORT INFORMATION
  Report Type: Spontaneous
  Country: US (occurrence: None)
  Receive Date: 20240430
  Receipt Date: 20240430
  Transmission Date: 20240716
  Serious: Yes (Hospitalization)
  Sender: FDA-Public Use
  Company Number: None

PATIENT
  Age: 77 Year
  Sex: Male

DRUGS (15)
  1. NUPLAZID [Suspect]
     Active Substance: PIMAVANSERIN TARTRATE
     Indication: Parkinson^s disease
     Dosage: FREQUENCY : DAILY;?
     Route: 048
     Dates: start: 20230907
  2. NUPLAZID [Suspect]
     Active Substance: PIMAVANSERIN TARTRATE
     Indication: Psychotic disorder
  3. METOLAZONE [Concomitant]
     Active Substance: METOLAZONE
  4. KERENDIA [Concomitant]
     Active Substance: FINERENONE
  5. METOPROLOL [Concomitant]
     Active Substance: METOPROLOL
  6. LIPITOR [Concomitant]
     Active Substance: ATORVASTATIN CALCIUM
  7. ELIQUIS [Concomitant]
     Active Substance: APIXABAN
  8. ZYLOPRIM [Concomitant]
     Active Substance: ALLOPURINOL
  9. PANTOPRAZOLE [Concomitant]
     Active Substance: PANTOPRAZOLE
  10. REQUIP [Concomitant]
     Active Substance: ROPINIROLE HYDROCHLORIDE
  11. CARBIDOPA\LEVODOPA [Concomitant]
     Active Substance: CARBIDOPA\LEVODOPA
  12. RAMIPRIL [Concomitant]
     Active Substance: RAMIPRIL
  13. BUMEX [Concomitant]
     Active Substance: BUMETANIDE
  14. MECLIZINE [Concomitant]
     Active Substance: MECLIZINE HYDROCHLORIDE
  15. TRAZODONE [Concomitant]
     Active Substance: TRAZODONE HYDROCHLORIDE

REACTIONS (4)
  - Therapy interrupted [None]
  - Hypotension [None]
  - Body temperature decreased [None]
  - Haematological infection [None]

NARRATIVE: CASE EVENT DATE: 20240406
